FAERS Safety Report 5062005-X (Version None)
Quarter: 2006Q3

REPORT INFORMATION
  Report Type: 
  Country: None (occurrence: None)
  Receive Date: 20060726
  Receipt Date: 20060313
  Transmission Date: 20061208
  Serious: Yes (Hospitalization)
  Sender: FDA-Public Use
  Company Number: JP-AVENTIS-200610803JP

PATIENT
  Age: 47 Year
  Sex: Female
  Weight: 47 kg

DRUGS (11)
  1. ARAVA [Suspect]
     Indication: RHEUMATOID ARTHRITIS
     Route: 048
     Dates: start: 20041227
  2. ARAVA [Suspect]
     Route: 048
     Dates: start: 20051103, end: 20060313
  3. METHOTREXATE [Concomitant]
     Indication: RHEUMATOID ARTHRITIS
  4. PREDNISOLONE [Concomitant]
     Route: 048
  5. GASTER [Concomitant]
     Route: 048
  6. RIMATIL [Concomitant]
     Route: 048
     Dates: end: 20060313
  7. BENET [Concomitant]
     Route: 048
     Dates: end: 20060313
  8. NEORAL [Concomitant]
     Route: 048
  9. IMURAN [Concomitant]
     Route: 048
     Dates: end: 20060313
  10. ISCOTIN [Concomitant]
     Route: 048
     Dates: end: 20060313
  11. ENBREL [Concomitant]
     Dates: start: 20050601, end: 20060313

REACTIONS (2)
  - ALANINE AMINOTRANSFERASE INCREASED [None]
  - HEPATIC FUNCTION ABNORMAL [None]
